FAERS Safety Report 18850529 (Version 1)
Quarter: 2021Q1

REPORT INFORMATION
  Report Type: Spontaneous
  Country: US (occurrence: US)
  Receive Date: 20210204
  Receipt Date: 20210204
  Transmission Date: 20210420
  Serious: Yes (Other)
  Sender: FDA-Public Use
  Company Number: NVSC2021US017946

PATIENT
  Sex: Male

DRUGS (1)
  1. VOTRIENT [Suspect]
     Active Substance: PAZOPANIB HYDROCHLORIDE
     Indication: AGRANULOCYTOSIS
     Dosage: 800 MG, QD
     Route: 048
     Dates: start: 20201231

REACTIONS (2)
  - Haemorrhage [Recovering/Resolving]
  - Product use in unapproved indication [Unknown]
